FAERS Safety Report 21700985 (Version 1)
Quarter: 2022Q4

REPORT INFORMATION
  Report Type: Spontaneous
  Country: US (occurrence: US)
  Receive Date: 20221208
  Receipt Date: 20221208
  Transmission Date: 20230112
  Serious: No
  Sender: FDA-Public Use
  Company Number: US-TAKEDA-2022TUS091302

PATIENT
  Sex: Male
  Weight: 53 kg

DRUGS (8)
  1. MOTEGRITY [Suspect]
     Active Substance: PRUCALOPRIDE SUCCINATE
     Indication: Constipation
     Dosage: 2 MILLIGRAM, QD
     Route: 048
  2. MILK OF MAGNESIA [Concomitant]
     Active Substance: MAGNESIUM HYDROXIDE
     Indication: Drug abuse
     Dosage: UNK
  3. SENEXON [Concomitant]
     Active Substance: SENNOSIDES A AND B
     Indication: Drug abuse
     Dosage: UNK
  4. MORPHINE [Concomitant]
     Active Substance: MORPHINE
     Indication: Breakthrough pain
     Dosage: 15 MILLIGRAM
     Route: 065
  5. DIAZEPAM [Concomitant]
     Active Substance: DIAZEPAM
     Dosage: 5 MILLIGRAM, TID
     Route: 065
  6. AMBIEN [Concomitant]
     Active Substance: ZOLPIDEM TARTRATE
     Dosage: 10 MILLIGRAM, QD
     Route: 065
  7. PREGABALIN [Concomitant]
     Active Substance: PREGABALIN
     Dosage: UNK
  8. SYMPROIC [Concomitant]
     Active Substance: NALDEMEDINE
     Dosage: UNK

REACTIONS (2)
  - Weight decreased [Unknown]
  - Breakthrough pain [Unknown]
